FAERS Safety Report 11005430 (Version 1)
Quarter: 2015Q2

REPORT INFORMATION
  Report Type: Spontaneous
  Country: US (occurrence: US)
  Receive Date: 20150409
  Receipt Date: 20150409
  Transmission Date: 20150821
  Serious: No
  Sender: FDA-Public Use
  Company Number: US-ALLERGAN-1424088US

PATIENT
  Sex: Female

DRUGS (3)
  1. LUMIGAN [Suspect]
     Active Substance: BIMATOPROST
     Indication: GLAUCOMA
     Dosage: 2 GTT, QHS
     Route: 047
     Dates: start: 20141111
  2. PREMARIN [Concomitant]
     Active Substance: ESTROGENS, CONJUGATED
  3. DESONIDE. [Suspect]
     Active Substance: DESONIDE
     Indication: DERMATITIS CONTACT
     Dosage: UNK
     Dates: start: 20141111

REACTIONS (2)
  - Dysgeusia [Unknown]
  - Eye discharge [Unknown]
